FAERS Safety Report 8979151 (Version 1)
Quarter: 2012Q4

REPORT INFORMATION
  Report Type: 
  Country: JP (occurrence: JP)
  Receive Date: 20121221
  Receipt Date: 20121221
  Transmission Date: 20130627
  Serious: Yes (Hospitalization)
  Sender: FDA-Public Use
  Company Number: JP-PFIZER INC-2012323168

PATIENT
  Sex: Male
  Weight: 63 kg

DRUGS (5)
  1. FOSPHENYTOIN SODIUM [Suspect]
     Indication: CONVULSION PROPHYLAXIS
     Dosage: 750 mg, 1x/day
     Route: 042
     Dates: start: 20121204, end: 20121204
  2. GASTER [Concomitant]
     Route: 042
  3. PRIMPERAN [Concomitant]
  4. CEFAMEZIN [Concomitant]
  5. DIPRIVAN [Concomitant]

REACTIONS (3)
  - Aspartate aminotransferase increased [Unknown]
  - Alanine aminotransferase increased [Unknown]
  - Blood lactate dehydrogenase increased [Unknown]
